FAERS Safety Report 5603214-8 (Version None)
Quarter: 2008Q1

REPORT INFORMATION
  Report Type: 
  Country: None (occurrence: None)
  Receive Date: 20080123
  Receipt Date: 20080114
  Transmission Date: 20080703
  Serious: Yes (Other)
  Sender: FDA-Public Use
  Company Number: 2008001374

PATIENT
  Age: 4 Year
  Sex: Female

DRUGS (3)
  1. SUDAFED (UNSPECIFIED0 (PARACETAMOL, PSEUDOEPHEDRINE) [Suspect]
     Indication: NASAL CONGESTION
     Dosage: 1 DOSAGE FORM 1/1 TOTAL, ORAL
     Route: 048
     Dates: start: 20071226, end: 20071226
  2. FLOXACILLIN SODIUM [Concomitant]
  3. ACETAMINOPHEN [Concomitant]

REACTIONS (1)
  - HALLUCINATION, VISUAL [None]
